FAERS Safety Report 13837760 (Version 1)
Quarter: 2017Q3

REPORT INFORMATION
  Report Type: Spontaneous
  Country: TR (occurrence: TR)
  Receive Date: 20170806
  Receipt Date: 20170806
  Transmission Date: 20171127
  Serious: Yes (Other)
  Sender: FDA-Public Use
  Company Number: TR-009507513-1708TUR001939

PATIENT
  Age: 79 Year
  Sex: Female

DRUGS (4)
  1. VASTAREL [Concomitant]
     Active Substance: TRIMETAZIDINE DIHYDROCHLORIDE
  2. KAPRIL (CAPTOPRIL) [Concomitant]
     Active Substance: CAPTOPRIL
     Indication: ARRHYTHMIA
     Dosage: UNK, AS NEEDED
  3. CLEXANE (SURICLONE) [Concomitant]
     Active Substance: ENOXAPARIN SODIUM
  4. INVANZ [Suspect]
     Active Substance: ERTAPENEM SODIUM
     Indication: PNEUMONIA ASPIRATION
     Dosage: 1 G, UNK
     Dates: start: 20170728, end: 20170803

REACTIONS (6)
  - Somnolence [Not Recovered/Not Resolved]
  - Gait inability [Not Recovered/Not Resolved]
  - Constipation [Not Recovered/Not Resolved]
  - Asthenia [Not Recovered/Not Resolved]
  - Blood pressure abnormal [Not Recovered/Not Resolved]
  - Hallucination [Not Recovered/Not Resolved]

NARRATIVE: CASE EVENT DATE: 2017
